FAERS Safety Report 13011509 (Version 6)
Quarter: 2018Q4

REPORT INFORMATION
  Report Type: Spontaneous
  Country: JP (occurrence: JP)
  Receive Date: 20161209
  Receipt Date: 20181005
  Transmission Date: 20190204
  Serious: Yes (Death, Hospitalization, Other)
  Sender: FDA-Public Use
  Company Number: JP-ROCHE-1864725

PATIENT
  Age: 70 Year
  Sex: Female
  Weight: 60 kg

DRUGS (12)
  1. MUCOSTA [Concomitant]
     Active Substance: REBAMIPIDE
     Indication: PAIN
     Route: 048
     Dates: start: 20151210, end: 20160727
  2. LOXONIN [Concomitant]
     Active Substance: LOXOPROFEN SODIUM
     Indication: PAIN
     Route: 048
     Dates: start: 20151210, end: 20160727
  3. PACLITAXEL. [Suspect]
     Active Substance: PACLITAXEL
     Indication: BREAST CANCER
     Route: 041
     Dates: start: 20151222, end: 20151222
  4. OXYCONTIN [Concomitant]
     Active Substance: OXYCODONE HYDROCHLORIDE
     Indication: PAIN
     Route: 048
     Dates: start: 20151215, end: 20160801
  5. AVASTIN [Suspect]
     Active Substance: BEVACIZUMAB
     Indication: BREAST CANCER
     Dosage: TREATMENT LINE: 1?COMPLETED TREATMENT CYCLE NUMBER: 2
     Route: 041
     Dates: start: 20151222, end: 20160209
  6. MAGMITT [Concomitant]
     Active Substance: MAGNESIUM OXIDE
     Indication: PROPHYLAXIS
     Route: 048
     Dates: start: 20151215, end: 20160720
  7. NOVAMIN (JAPAN) [Concomitant]
     Indication: PROPHYLAXIS
     Route: 048
     Dates: start: 20151215, end: 20160105
  8. LAXOBERON [Concomitant]
     Active Substance: SODIUM PICOSULFATE
     Indication: PROPHYLAXIS
     Dosage: ARBITRARILY TAKEN AS NEEDED.
     Route: 048
     Dates: start: 20151215, end: 20160310
  9. PACLITAXEL. [Suspect]
     Active Substance: PACLITAXEL
     Indication: BREAST CANCER
     Route: 041
     Dates: start: 20160105, end: 20160112
  10. OXINORM (JAPAN) [Concomitant]
     Active Substance: OXYCODONE HYDROCHLORIDE
     Indication: PAIN
     Dosage: TAKEN AS NEEDED.
     Route: 048
     Dates: start: 20151215, end: 20160805
  11. PACLITAXEL. [Suspect]
     Active Substance: PACLITAXEL
     Indication: BREAST CANCER
     Route: 041
     Dates: start: 20160126, end: 20160209
  12. RESTAMIN [Concomitant]
     Active Substance: DIPHENHYDRAMINE
     Indication: PROPHYLAXIS
     Dosage: BEFORE CHEMICAL TREATMENT.
     Route: 048
     Dates: start: 20151215, end: 20160209

REACTIONS (7)
  - Anaemia [Unknown]
  - Breast cancer [Fatal]
  - Transient ischaemic attack [Recovering/Resolving]
  - Alopecia [Unknown]
  - Metastases to liver [Fatal]
  - Interstitial lung disease [Recovered/Resolved]
  - Jaundice cholestatic [Fatal]

NARRATIVE: CASE EVENT DATE: 20160217
